FAERS Safety Report 9676003 (Version 2)
Quarter: 2013Q4

REPORT INFORMATION
  Report Type: Report from Study
  Country: US (occurrence: US)
  Receive Date: 20131107
  Receipt Date: 20131107
  Transmission Date: 20140711
  Serious: Yes (Hospitalization)
  Sender: FDA-Public Use
  Company Number: PHEH2013US017731

PATIENT
  Age: 63 Year
  Sex: Male

DRUGS (8)
  1. TASIGNA [Suspect]
     Indication: CHRONIC MYELOID LEUKAEMIA
     Dosage: 400 MG, BID
     Route: 048
     Dates: start: 20130411, end: 20130827
  2. ABILIFY [Concomitant]
  3. ALPRAZOLAM [Concomitant]
  4. AMANTADINE [Concomitant]
  5. ESTROPIPATE [Concomitant]
  6. LYRICA [Concomitant]
  7. TRAMADOL [Concomitant]
  8. TRANDOLAPRIL [Concomitant]

REACTIONS (5)
  - Neuropsychiatric syndrome [Unknown]
  - Gait disturbance [Unknown]
  - Speech disorder [Unknown]
  - Dysphagia [Unknown]
  - Tremor [Unknown]
